FAERS Safety Report 5452803-2 (Version None)
Quarter: 2007Q3

REPORT INFORMATION
  Report Type: 
  Country: None (occurrence: None)
  Receive Date: 20070914
  Receipt Date: 20070903
  Transmission Date: 20080115
  Serious: Yes (Other)
  Sender: FDA-Public Use
  Company Number: GB-ELI_LILLY_AND_COMPANY-GB200709000150

PATIENT
  Sex: Female

DRUGS (2)
  1. BYETTA [Suspect]
     Dosage: 5 UG, UNK
     Dates: start: 20070701
  2. BYETTA [Suspect]
     Dosage: 10 UG, UNK

REACTIONS (4)
  - BRADYCARDIA [None]
  - PALPITATIONS [None]
  - RASH [None]
  - SYNCOPE [None]
